FAERS Safety Report 17656955 (Version 4)
Quarter: 2020Q2

REPORT INFORMATION
  Report Type: Spontaneous
  Country: US (occurrence: US)
  Receive Date: 20200410
  Receipt Date: 20200511
  Transmission Date: 20200713
  Serious: No
  Sender: FDA-Public Use
  Company Number: US-PFIZER INC-2020148372

PATIENT
  Age: 52 Year
  Sex: Female

DRUGS (2)
  1. CELEBREX [Suspect]
     Active Substance: CELECOXIB
     Indication: PSORIATIC ARTHROPATHY
     Dosage: 200 MG, 2X/DAY (1 CAPSULE WITH FOOD ORALLY TWICE A DAY 90 DAYS)
     Route: 048
  2. GABAPENTIN. [Concomitant]
     Active Substance: GABAPENTIN
     Dosage: 400 MG, 2X/DAY (BEFORE BEDTIME)
     Route: 048
     Dates: start: 20180306

REACTIONS (3)
  - Product use in unapproved indication [Unknown]
  - Accident at work [Unknown]
  - Off label use [Unknown]
